FAERS Safety Report 20535190 (Version 2)
Quarter: 2025Q1

REPORT INFORMATION
  Report Type: Spontaneous
  Country: US (occurrence: US)
  Receive Date: 20220302
  Receipt Date: 20250224
  Transmission Date: 20250408
  Serious: No
  Sender: ROCHE
  Company Number: US-ROCHE-2867264

PATIENT
  Age: 5 Year
  Sex: Male

DRUGS (1)
  1. NUTROPIN [Suspect]
     Active Substance: SOMATROPIN
     Indication: Product used for unknown indication
     Route: 058
     Dates: start: 20201228

REACTIONS (2)
  - Product dose omission in error [Unknown]
  - No adverse event [Unknown]

NARRATIVE: CASE EVENT DATE: 20210707
